FAERS Safety Report 4456687-0 (Version None)
Quarter: 2004Q3

REPORT INFORMATION
  Report Type: 
  Country: None (occurrence: None)
  Receive Date: 20040923
  Receipt Date: 20040916
  Transmission Date: 20050211
  Serious: Yes (Congenital Anomaly, Other)
  Sender: FDA-Public Use
  Company Number: 200417079US

PATIENT
  Sex: Male

DRUGS (1)
  1. LANTUS [Suspect]
     Dosage: DOSE: UNK
     Route: 065

REACTIONS (3)
  - CARDIAC DISORDER [None]
  - DRUG EXPOSURE DURING PREGNANCY [None]
  - NEONATAL DISORDER [None]
